FAERS Safety Report 23050611 (Version 1)
Quarter: 2023Q4

REPORT INFORMATION
  Report Type: Spontaneous
  Country: CA (occurrence: CA)
  Receive Date: 20231010
  Receipt Date: 20231010
  Transmission Date: 20240109
  Serious: Yes (Other)
  Sender: FDA-Public Use
  Company Number: CA-002147023-NVSC2023CA214662

PATIENT
  Age: 26 Year
  Sex: Female

DRUGS (1)
  1. EVEROLIMUS [Suspect]
     Active Substance: EVEROLIMUS
     Indication: Chronic kidney disease
     Dosage: 5 MG, QD
     Route: 065

REACTIONS (2)
  - Proteinuria [Recovering/Resolving]
  - Product use in unapproved indication [Unknown]
